FAERS Safety Report 16097740 (Version 2)
Quarter: 2019Q1

REPORT INFORMATION
  Report Type: Report from Study
  Country: GB (occurrence: GB)
  Receive Date: 20190320
  Receipt Date: 20190329
  Transmission Date: 20190418
  Serious: Yes (Hospitalization)
  Sender: FDA-Public Use
  Company Number: PHHY2019GB060802

PATIENT
  Age: 55 Year
  Sex: Female
  Weight: 98.85 kg

DRUGS (4)
  1. KISQALI [Suspect]
     Active Substance: RIBOCICLIB
     Indication: BREAST CANCER METASTATIC
     Dosage: 600 MG, QD
     Route: 048
     Dates: start: 20190131, end: 20190313
  2. LETROZOLE. [Concomitant]
     Active Substance: LETROZOLE
     Indication: BREAST CANCER METASTATIC
     Dosage: 2.5 MG, UNK
     Route: 065
     Dates: start: 20190131
  3. CYCLIZINE [Concomitant]
     Active Substance: CYCLIZINE
     Indication: NAUSEA
     Dosage: 50 MG, PRN
     Route: 065
  4. CYCLIZINE [Concomitant]
     Active Substance: CYCLIZINE
     Indication: VOMITING

REACTIONS (4)
  - Chills [Unknown]
  - Fatigue [Unknown]
  - Body temperature increased [Unknown]
  - Alanine aminotransferase abnormal [Unknown]

NARRATIVE: CASE EVENT DATE: 20190312
